FAERS Safety Report 15236117 (Version 1)
Quarter: 2020Q3

REPORT INFORMATION
  Report Type: Report from Study
  Country: ES (occurrence: ES)
  Receive Date: 20180803
  Receipt Date: 20180803
  Transmission Date: 20201104
  Serious: Yes (Death, Life-Threatening, Hospitalization)
  Sender: FDA-Public Use
  Company Number: ES-ASTRAZENECA-2018SE98440

PATIENT
  Age: 19140 Day
  Sex: Male
  Weight: 69 kg

DRUGS (2)
  1. MEDI4736 [Suspect]
     Active Substance: DURVALUMAB
     Indication: NEUROENDOCRINE TUMOUR OF THE LUNG METASTATIC
     Route: 042
     Dates: start: 20180504
  2. TREMELIMUMAB. [Suspect]
     Active Substance: TREMELIMUMAB
     Indication: NEUROENDOCRINE TUMOUR OF THE LUNG METASTATIC
     Route: 042
     Dates: start: 20180504

REACTIONS (1)
  - Hepatitis fulminant [Fatal]

NARRATIVE: CASE EVENT DATE: 20180727
